FAERS Safety Report 9595288 (Version 4)
Quarter: 2014Q1

REPORT INFORMATION
  Report Type: Spontaneous
  Country: US (occurrence: US)
  Receive Date: 20131004
  Receipt Date: 20140313
  Transmission Date: 20141002
  Serious: No
  Sender: FDA-Public Use
  Company Number: US-PFIZER INC-2013283456

PATIENT
  Sex: Female
  Weight: 43.31 kg

DRUGS (2)
  1. NEURONTIN [Suspect]
     Dosage: 100 MG, UNK
  2. LIPITOR [Suspect]
     Dosage: 10 MG, UNK

REACTIONS (1)
  - Pain [Unknown]
